FAERS Safety Report 13127834 (Version 1)
Quarter: 2017Q1

REPORT INFORMATION
  Report Type: Spontaneous
  Country: DE (occurrence: DE)
  Receive Date: 20170118
  Receipt Date: 20170118
  Transmission Date: 20170428
  Serious: Yes (Other)
  Sender: FDA-Public Use
  Company Number: DE-TEVA-729190GER

PATIENT
  Sex: Male

DRUGS (1)
  1. COTRIM FORTE [Suspect]
     Active Substance: SULFAMETHOXAZOLE\TRIMETHOPRIM
     Dosage: 1 DF CONTAINS 800 MG SULFAMETHOXAZOLE AND 160 MG TRIMETHOPRIM
     Route: 048

REACTIONS (4)
  - Retching [Recovered/Resolved]
  - Product taste abnormal [Unknown]
  - Choking [Recovered/Resolved]
  - Foreign body [Recovered/Resolved]
